FAERS Safety Report 9606076 (Version 2)
Quarter: 2014Q4

REPORT INFORMATION
  Report Type: Spontaneous
  Country: US (occurrence: US)
  Receive Date: 20131008
  Receipt Date: 20141006
  Transmission Date: 20150529
  Serious: No
  Sender: FDA-Public Use
  Company Number: US-AMGEN-USASP2013041122

PATIENT
  Sex: Female

DRUGS (1)
  1. PROLIA [Suspect]
     Active Substance: DENOSUMAB
     Indication: OSTEOPOROSIS POSTMENOPAUSAL
     Dosage: UNK
     Route: 065
     Dates: start: 20121214

REACTIONS (15)
  - Skin infection [Not Recovered/Not Resolved]
  - Wound [Not Recovered/Not Resolved]
  - Nausea [Unknown]
  - Vision blurred [Unknown]
  - Insomnia [Not Recovered/Not Resolved]
  - Disturbance in attention [Not Recovered/Not Resolved]
  - Arthralgia [Not Recovered/Not Resolved]
  - Constipation [Unknown]
  - Body height decreased [Not Recovered/Not Resolved]
  - Myalgia [Not Recovered/Not Resolved]
  - Dermatitis acneiform [Not Recovered/Not Resolved]
  - Impaired healing [Not Recovered/Not Resolved]
  - Bone pain [Not Recovered/Not Resolved]
  - Eczema [Unknown]
  - Eructation [Unknown]

NARRATIVE: CASE EVENT DATE: 20121215
